FAERS Safety Report 7079207-3 (Version None)
Quarter: 2010Q4

REPORT INFORMATION
  Report Type: 
  Country: None (occurrence: None)
  Receive Date: 20101102
  Receipt Date: 20101024
  Transmission Date: 20110411
  Serious: Yes (Hospitalization)
  Sender: FDA-Public Use
  Company Number: B0682299A

PATIENT
  Age: 61 Year
  Sex: Female

DRUGS (3)
  1. PROPAFENONE HCL [Suspect]
     Indication: ARRHYTHMIA
     Route: 065
  2. ADENOSINE [Concomitant]
     Indication: TACHYCARDIA
     Route: 042
  3. BETA-ADRENOCEPTOR ANTAGONIST [Concomitant]
     Indication: TACHYCARDIA
     Route: 065

REACTIONS (3)
  - DRUG INEFFECTIVE [None]
  - HEPATIC ENZYME INCREASED [None]
  - HYPOTENSION [None]
